FAERS Safety Report 5762975-8 (Version None)
Quarter: 2008Q2

REPORT INFORMATION
  Report Type: 
  Country: None (occurrence: None)
  Receive Date: 20080609
  Receipt Date: 20080528
  Transmission Date: 20081010
  Serious: Yes (Other)
  Sender: FDA-Public Use
  Company Number: US-PFIZER INC-2008045802

PATIENT
  Sex: Female

DRUGS (1)
  1. GEODON [Suspect]
     Indication: SCHIZOPHRENIA

REACTIONS (4)
  - ADVERSE DRUG REACTION [None]
  - BALANCE DISORDER [None]
  - DYSSTASIA [None]
  - MOTOR DYSFUNCTION [None]
